FAERS Safety Report 20160615 (Version 1)
Quarter: 2021Q4

REPORT INFORMATION
  Report Type: Spontaneous
  Country: BR (occurrence: None)
  Receive Date: 20211208
  Receipt Date: 20211208
  Transmission Date: 20220303
  Serious: Yes (Other)
  Sender: FDA-Public Use
  Company Number: 2021A850953

PATIENT
  Age: 653 Month
  Sex: Male

DRUGS (4)
  1. TAGRISSO [Suspect]
     Active Substance: OSIMERTINIB
     Indication: Lung adenocarcinoma
     Dosage: HALF A TABLET
     Route: 048
     Dates: start: 202111
  2. PHARMATON ENERGY [Concomitant]
     Indication: Nutritional supplement allergy
     Dates: start: 202109
  3. BENICAR ANLO 20/5MG [Concomitant]
     Indication: Blood pressure measurement
     Dosage: A TABLET,DAILY
     Route: 048
     Dates: start: 2015
  4. GLIFAGE [Concomitant]
     Active Substance: METFORMIN HYDROCHLORIDE
     Indication: Blood pressure measurement
     Dosage: A TABLET
     Route: 048
     Dates: start: 2018

REACTIONS (3)
  - Nodule [Not Recovered/Not Resolved]
  - Decreased appetite [Recovering/Resolving]
  - Off label use [Not Recovered/Not Resolved]

NARRATIVE: CASE EVENT DATE: 20210301
